FAERS Safety Report 5107273-0 (Version None)
Quarter: 2006Q3

REPORT INFORMATION
  Report Type: 
  Country: None (occurrence: None)
  Receive Date: 20060912
  Receipt Date: 20060808
  Transmission Date: 20061208
  Serious: Yes (Life-Threatening, Hospitalization, Other)
  Sender: FDA-Public Use
  Company Number: 2006BH012551

PATIENT
  Age: 5 Year
  Sex: Male

DRUGS (1)
  1. RECOMBINATE [Suspect]
     Indication: FACTOR VIII DEFICIENCY
     Dosage: AS NEEDED; IV
     Route: 042
     Dates: start: 20060725, end: 20060725

REACTIONS (5)
  - CIRCUMSTANCE OR INFORMATION CAPABLE OF LEADING TO MEDICATION ERROR [None]
  - KLEBSIELLA BACTERAEMIA [None]
  - PYREXIA [None]
  - SEPSIS [None]
  - THERAPEUTIC PRODUCT CONTAMINATION [None]
